FAERS Safety Report 17997575 (Version 1)
Quarter: 2020Q3

REPORT INFORMATION
  Report Type: Other
  Country: HR (occurrence: HR)
  Receive Date: 20200708
  Receipt Date: 20200708
  Transmission Date: 20201103
  Serious: Yes (Death, Life-Threatening, Hospitalization)
  Sender: FDA-Public Use
  Company Number: HR-NOSTRUM LABORATORIES, INC.-2087150

PATIENT
  Age: 80 Year
  Sex: Male

DRUGS (2)
  1. ALOGLIPTIN. [Concomitant]
     Active Substance: ALOGLIPTIN
     Route: 048
  2. METFORMIN HYDROCHLORIDE EXTENDED?RELEASE [Suspect]
     Active Substance: METFORMIN HYDROCHLORIDE
     Indication: TYPE 2 DIABETES MELLITUS
     Route: 048

REACTIONS (6)
  - Hyperkalaemia [Fatal]
  - Lactic acidosis [Fatal]
  - Acute kidney injury [Fatal]
  - Hyperglycaemia [Unknown]
  - Hypovolaemic shock [Fatal]
  - Accidental overdose [Fatal]
